FAERS Safety Report 14922634 (Version 2)
Quarter: 2020Q4

REPORT INFORMATION
  Report Type: Spontaneous
  Country: DE (occurrence: DE)
  Receive Date: 20180522
  Receipt Date: 20201207
  Transmission Date: 20210113
  Serious: Yes (Other)
  Sender: FDA-Public Use
  Company Number: DE-LUPIN PHARMACEUTICALS INC.-2017-06140

PATIENT
  Age: 34 Year
  Sex: Female

DRUGS (1)
  1. QUETIAPINE FUMARATE. [Suspect]
     Active Substance: QUETIAPINE FUMARATE
     Indication: PSYCHOTIC DISORDER
     Dosage: 300 MG, QD (FILM-COATED TABLET)
     Route: 048

REACTIONS (4)
  - Exposure during pregnancy [Unknown]
  - Prolonged pregnancy [Unknown]
  - Anaemia of pregnancy [Unknown]
  - Labour complication [Unknown]
